FAERS Safety Report 22355014 (Version 1)
Quarter: 2023Q2

REPORT INFORMATION
  Report Type: Spontaneous
  Country: US (occurrence: US)
  Receive Date: 20230523
  Receipt Date: 20230523
  Transmission Date: 20230721
  Serious: No
  Sender: FDA-Public Use
  Company Number: US-SA-SAC20230522000535

PATIENT
  Age: 76 Year
  Sex: Female
  Weight: 160 kg

DRUGS (15)
  1. DUPIXENT [Suspect]
     Active Substance: DUPILUMAB
     Indication: Nasal polyps
     Dosage: 300 MG, QOW
     Route: 058
  2. ALBUTEROL SULFATE [Concomitant]
     Active Substance: ALBUTEROL SULFATE
     Route: 055
  3. SINGULAIR [Concomitant]
     Active Substance: MONTELUKAST SODIUM
     Dosage: UNK
     Route: 048
  4. BUDESONIDE [Concomitant]
     Active Substance: BUDESONIDE
     Dosage: UNK
     Route: 055
  5. TRELEGY ELLIPTA [Concomitant]
     Active Substance: FLUTICASONE FUROATE\UMECLIDINIUM BROMIDE\VILANTEROL TRIFENATATE
     Route: 055
  6. CALCIUM CITRATE [Concomitant]
     Active Substance: CALCIUM CITRATE
     Route: 048
  7. VITAMIN D NOS [Concomitant]
     Active Substance: VITAMIN D NOS
     Route: 048
  8. CLONAZEPAM [Concomitant]
     Active Substance: CLONAZEPAM
     Route: 048
  9. ZYRTEC [Concomitant]
     Active Substance: CETIRIZINE HYDROCHLORIDE
     Route: 048
  10. DULOXETINE HYDROCHLORIDE [Concomitant]
     Active Substance: DULOXETINE HYDROCHLORIDE
     Route: 048
  11. LEVOTHYROXINE SODIUM [Concomitant]
     Active Substance: LEVOTHYROXINE SODIUM
     Route: 048
  12. OMEPRAZOLE [Concomitant]
     Active Substance: OMEPRAZOLE
     Route: 048
  13. PRAVASTATIN SODIUM [Concomitant]
     Active Substance: PRAVASTATIN SODIUM
     Route: 048
  14. PREDNISONE [Concomitant]
     Active Substance: PREDNISONE
     Route: 048
  15. MINERALS\VITAMINS [Concomitant]
     Active Substance: MINERALS\VITAMINS
     Route: 048

REACTIONS (2)
  - Injection site discomfort [Unknown]
  - Injection site pain [Unknown]
